FAERS Safety Report 14894538 (Version 2)
Quarter: 2018Q2

REPORT INFORMATION
  Report Type: Report from Study
  Country: None (occurrence: CA)
  Receive Date: 20180515
  Receipt Date: 20180521
  Transmission Date: 20180711
  Serious: No
  Sender: FDA-Public Use
  Company Number: CA-ABBVIE-18K-028-2349563-00

PATIENT
  Sex: Female

DRUGS (1)
  1. HUMIRA [Suspect]
     Active Substance: ADALIMUMAB
     Indication: CROHN^S DISEASE
     Route: 058
     Dates: start: 20130514

REACTIONS (10)
  - Drug effect incomplete [Not Recovered/Not Resolved]
  - Abdominal pain [Not Recovered/Not Resolved]
  - Haemorrhoids [Recovered/Resolved]
  - Bowel movement irregularity [Not Recovered/Not Resolved]
  - Diarrhoea [Not Recovered/Not Resolved]
  - Urticaria [Recovering/Resolving]
  - Weight increased [Unknown]
  - Rash pruritic [Recovering/Resolving]
  - Biopsy rectum abnormal [Not Recovered/Not Resolved]
  - Haematochezia [Not Recovered/Not Resolved]
